FAERS Safety Report 10687163 (Version 2)
Quarter: 2015Q2

REPORT INFORMATION
  Report Type: Spontaneous
  Country: BR (occurrence: BR)
  Receive Date: 20150102
  Receipt Date: 20150527
  Transmission Date: 20150821
  Serious: Yes (Hospitalization, Other)
  Sender: FDA-Public Use
  Company Number: BR-DSJP-DSJ-2014-133954

PATIENT

DRUGS (9)
  1. OLMESARTAN MEDOXOMIL. [Suspect]
     Active Substance: OLMESARTAN MEDOXOMIL
     Dosage: 60 MG, QD
     Route: 048
     Dates: start: 2012
  2. ACETYLSALICYLIC ACID [Concomitant]
     Active Substance: ASPIRIN
     Dosage: UNK
     Route: 065
     Dates: start: 2004
  3. PROPRANOLOL                        /00030002/ [Concomitant]
     Dosage: UNK
     Route: 065
  4. SITAGLIPTIN METFORMIN [Concomitant]
     Active Substance: METFORMIN HYDROCHLORIDE\SITAGLIPTIN PHOSPHATE
     Dosage: UNK
     Route: 065
     Dates: start: 2012
  5. OLMESARTAN MEDOXOMIL. [Suspect]
     Active Substance: OLMESARTAN MEDOXOMIL
     Indication: HYPERTENSION
     Dosage: 40 MG, QD
     Route: 048
     Dates: start: 2012, end: 2012
  6. CLONAZEPAM. [Concomitant]
     Active Substance: CLONAZEPAM
     Dosage: UNK
     Route: 065
     Dates: start: 2012
  7. CIPROFIBRATE [Concomitant]
     Active Substance: CIPROFIBRATE
     Dosage: UNK
     Route: 065
     Dates: start: 2012
  8. OLMESARTAN MEDOXOMIL. [Suspect]
     Active Substance: OLMESARTAN MEDOXOMIL
     Dosage: 40 MG, QD
     Route: 048
  9. METFORMIN [Concomitant]
     Active Substance: METFORMIN HYDROCHLORIDE
     Dosage: UNK
     Route: 065

REACTIONS (8)
  - Ovarian cancer stage I [Recovered/Resolved]
  - Thyroid cancer stage I [Recovered/Resolved with Sequelae]
  - Uterine cancer [Recovered/Resolved]
  - Fallopian tube cancer stage I [Recovered/Resolved]
  - Cervix carcinoma stage I [Recovered/Resolved]
  - Overdose [Unknown]
  - Endometrial cancer stage I [Recovered/Resolved]
  - Blood pressure increased [Recovered/Resolved]
